FAERS Safety Report 23516998 (Version 1)
Quarter: 2024Q1

REPORT INFORMATION
  Report Type: Report from Study
  Country: US (occurrence: US)
  Receive Date: 20240213
  Receipt Date: 20240213
  Transmission Date: 20240410
  Serious: Yes (Hospitalization)
  Sender: FDA-Public Use
  Company Number: US-REGENERON PHARMACEUTICALS, INC.-2024-025238

PATIENT

DRUGS (2)
  1. EVKEEZA [Suspect]
     Active Substance: EVINACUMAB-DGNB
     Indication: Type IIa hyperlipidaemia
     Dosage: UNK, INJECTION
  2. EVKEEZA [Suspect]
     Active Substance: EVINACUMAB-DGNB
     Dosage: UNK, INJECTION
     Dates: start: 20231207

REACTIONS (3)
  - Fatigue [Recovering/Resolving]
  - Affective disorder [Recovering/Resolving]
  - Muscle tightness [Recovering/Resolving]
